FAERS Safety Report 14513907 (Version 1)
Quarter: 2018Q1

REPORT INFORMATION
  Report Type: Spontaneous
  Country: US (occurrence: US)
  Receive Date: 20180209
  Receipt Date: 20180209
  Transmission Date: 20180509
  Serious: No
  Sender: FDA-Public Use
  Company Number: US-LEXICON PHARMACEUTICALS, INC-18-1606-00028

PATIENT
  Sex: Female

DRUGS (3)
  1. AFINITOR [Concomitant]
     Active Substance: EVEROLIMUS
  2. TELOTRISTAT ETHYL [Suspect]
     Active Substance: TELOTRISTAT ETHYL
     Indication: CARCINOID SYNDROME
     Route: 048
     Dates: start: 20170415
  3. SANDOSTATIN LAR DEPOT [Concomitant]
     Active Substance: OCTREOTIDE ACETATE
     Dates: start: 2010

REACTIONS (3)
  - Walking aid user [Unknown]
  - Dysgeusia [Unknown]
  - Decreased appetite [Unknown]
